FAERS Safety Report 23599925 (Version 1)
Quarter: 2024Q1

REPORT INFORMATION
  Report Type: Spontaneous
  Country: IT (occurrence: IT)
  Receive Date: 20240306
  Receipt Date: 20240306
  Transmission Date: 20240409
  Serious: Yes (Hospitalization, Other)
  Sender: FDA-Public Use
  Company Number: None

PATIENT
  Age: 75 Year
  Sex: Female
  Weight: 53 kg

DRUGS (4)
  1. OXALIPLATIN [Suspect]
     Active Substance: OXALIPLATIN
     Indication: Non-Hodgkin^s lymphoma
     Dosage: 100 MG, Q3W
     Route: 042
     Dates: start: 20231128, end: 20231128
  2. OXALIPLATIN [Suspect]
     Active Substance: OXALIPLATIN
     Dosage: 100 MG, Q3W
     Route: 042
     Dates: start: 20231219, end: 20231219
  3. GEMCITABINE HYDROCHLORIDE [Suspect]
     Active Substance: GEMCITABINE HYDROCHLORIDE
     Indication: Non-Hodgkin^s lymphoma
     Dosage: 1550 MG, Q3W
     Route: 042
     Dates: start: 20231128, end: 20231128
  4. GEMCITABINE HYDROCHLORIDE [Suspect]
     Active Substance: GEMCITABINE HYDROCHLORIDE
     Dosage: 1034 MG, Q3W
     Route: 042
     Dates: start: 20231219, end: 20231219

REACTIONS (3)
  - Hypercalcaemia [Recovered/Resolved]
  - Toxicity to various agents [Unknown]
  - COVID-19 [Recovered/Resolved]

NARRATIVE: CASE EVENT DATE: 20240108
